FAERS Safety Report 9715876 (Version 1)
Quarter: 2013Q4

REPORT INFORMATION
  Report Type: Spontaneous
  Country: US (occurrence: None)
  Receive Date: 20131126
  Receipt Date: 20131126
  Transmission Date: 20140711
  Serious: Yes (Life-Threatening, Hospitalization)
  Sender: FDA-Public Use
  Company Number: None

PATIENT
  Age: 52 Year
  Sex: Female
  Weight: 81.65 kg

DRUGS (1)
  1. CEFUROXIME [Suspect]
     Indication: LUNG INFECTION
     Dosage: 1 PILL 2 A DAY
     Route: 048
     Dates: start: 20131121

REACTIONS (5)
  - Palpitations [None]
  - Feeling hot [None]
  - Lip swelling [None]
  - Dizziness [None]
  - Shock [None]
